FAERS Safety Report 18791231 (Version 2)
Quarter: 2021Q1

REPORT INFORMATION
  Report Type: Report from Study
  Country: US (occurrence: US)
  Receive Date: 20210126
  Receipt Date: 20210222
  Transmission Date: 20210419
  Serious: Yes (Death, Other)
  Sender: FDA-Public Use
  Company Number: US-ACADIA PHARMACEUTICALS INC.-ACA-2021-PIM-000169

PATIENT
  Age: 85 Year
  Sex: Female

DRUGS (12)
  1. PAROXETINE. [Concomitant]
     Active Substance: PAROXETINE
  2. NUPLAZID [Suspect]
     Active Substance: PIMAVANSERIN TARTRATE
     Indication: PARKINSON^S DISEASE
     Dosage: 10 MILLIGRAM, QD
     Route: 048
     Dates: start: 20201030
  3. INSULIN [Concomitant]
     Active Substance: INSULIN NOS
  4. FERROUS SULFATE. [Concomitant]
     Active Substance: FERROUS SULFATE
  5. ATORVASTATIN [Concomitant]
     Active Substance: ATORVASTATIN
  6. CARVEDILOL. [Concomitant]
     Active Substance: CARVEDILOL
  7. FISH OIL [Concomitant]
     Active Substance: FISH OIL
  8. FOLIC ACID. [Concomitant]
     Active Substance: FOLIC ACID
  9. TRAZODONE [Concomitant]
     Active Substance: TRAZODONE HYDROCHLORIDE
  10. ACETAMINOPHEN. [Concomitant]
     Active Substance: ACETAMINOPHEN
  11. DIGOXIN. [Concomitant]
     Active Substance: DIGOXIN
  12. BASAGLAR [Concomitant]
     Active Substance: INSULIN GLARGINE

REACTIONS (2)
  - Death [Fatal]
  - Prescribed underdose [Unknown]

NARRATIVE: CASE EVENT DATE: 20201030
